FAERS Safety Report 8733760 (Version 2)
Quarter: 2012Q4

REPORT INFORMATION
  Report Type: 
  Country: US (occurrence: US)
  Receive Date: 20120821
  Receipt Date: 20121109
  Transmission Date: 20130627
  Serious: Yes (Hospitalization)
  Sender: FDA-Public Use
  Company Number: US-BAYER-2012-085229

PATIENT
  Age: 39 Year
  Sex: Female
  Weight: 83.9 kg

DRUGS (3)
  1. OCELLA [Suspect]
     Indication: CONTRACEPTION
     Dosage: UNK
     Dates: start: 20090407, end: 20100816
  2. ABILIFY [Concomitant]
     Dosage: 30 mg, UNK
     Route: 048
  3. TOPIRAMATE [Concomitant]
     Dosage: 20 mg, UNK
     Route: 048

REACTIONS (11)
  - Deep vein thrombosis [None]
  - Myocardial infarction [None]
  - Injury [None]
  - Emotional distress [None]
  - Fear of death [None]
  - Nervousness [None]
  - Depression [None]
  - Pain [None]
  - Chest pain [None]
  - Pain in extremity [None]
  - Swelling [None]
